FAERS Safety Report 9118334 (Version 1)
Quarter: 2013Q1

REPORT INFORMATION
  Report Type: Spontaneous
  Country: DK (occurrence: None)
  Receive Date: 20130128
  Receipt Date: 20130128
  Transmission Date: 20140127
  Serious: Yes (Disabling)
  Sender: FDA-Public Use
  Company Number: 2013MA000636

PATIENT
  Age: 49 Year
  Sex: Male

DRUGS (2)
  1. FINASTERIDE TABLETS, USP 5 MG (ATLLC) (FINASTERIDE) [Suspect]
     Route: 048
     Dates: start: 20041201, end: 20080616
  2. TAMSULOSIN [Suspect]
     Route: 048
     Dates: start: 20041201, end: 20080616

REACTIONS (3)
  - Haematospermia [None]
  - Sexual dysfunction [None]
  - Erectile dysfunction [None]
